FAERS Safety Report 8118705-8 (Version None)
Quarter: 2012Q1

REPORT INFORMATION
  Report Type: 
  Country: None (occurrence: None)
  Receive Date: 20120202
  Receipt Date: 20120123
  Transmission Date: 20120608
  Serious: Yes (Other)
  Sender: FDA-Public Use
  Company Number: JP-2012-10256

PATIENT
  Age: 85 Year
  Sex: Female
  Weight: 42 kg

DRUGS (18)
  1. DOPAMINE HCL [Concomitant]
  2. SOLDATONE (POTASSIUM CANRENOATE) [Concomitant]
  3. WARFARIN SODIUM [Concomitant]
  4. TRANDOLAPRIL [Concomitant]
  5. LASIX [Concomitant]
  6. ALDACTONE [Concomitant]
  7. NITRAZEPAM [Concomitant]
  8. HANP (CARPERITIDE) [Concomitant]
  9. METOPROLOL TARTRATE [Concomitant]
  10. ISOSORBIDE DINITRATE [Concomitant]
  11. LASIX [Concomitant]
  12. SAMSCA [Suspect]
     Indication: CARDIAC FAILURE CHRONIC
     Dosage: 7.5 MG MILLIGRAM(S), QD, ORAL ; 15 MG MILLIGRAM(S), QD, ORAL
     Route: 048
     Dates: start: 20111218, end: 20120102
  13. SAMSCA [Suspect]
     Indication: CARDIAC FAILURE CHRONIC
     Dosage: 7.5 MG MILLIGRAM(S), QD, ORAL ; 15 MG MILLIGRAM(S), QD, ORAL
     Route: 048
     Dates: start: 20111216, end: 20111217
  14. MEROPENEM [Concomitant]
  15. SIGMART (NICORANDIL) [Concomitant]
  16. CELECOXIB [Concomitant]
  17. SIGMART (NICORANDIL) [Concomitant]
  18. DEPAS (ETIZOLAM) [Concomitant]

REACTIONS (2)
  - PANCYTOPENIA [None]
  - RASH [None]
